FAERS Safety Report 4709630-0 (Version None)
Quarter: 2005Q3

REPORT INFORMATION
  Report Type: 
  Country: None (occurrence: None)
  Receive Date: 20050707
  Receipt Date: 20050624
  Transmission Date: 20060218
  Serious: Yes (Death)
  Sender: FDA-Public Use
  Company Number: 013

PATIENT
  Sex: Male
  Weight: 136.0791 kg

DRUGS (3)
  1. FAZACLO ODT [Suspect]
     Indication: SCHIZOPHRENIA
     Dosage: 200 MG PO HS
     Route: 048
     Dates: start: 20050610, end: 20050619
  2. HALDOL [Concomitant]
  3. LAMISIL [Concomitant]

REACTIONS (4)
  - CARDIAC ARREST [None]
  - CYANOSIS [None]
  - DEPRESSED LEVEL OF CONSCIOUSNESS [None]
  - SLEEP APNOEA SYNDROME [None]
